FAERS Safety Report 13366975 (Version 1)
Quarter: 2017Q1

REPORT INFORMATION
  Report Type: Report from Study
  Country: US (occurrence: US)
  Receive Date: 20170324
  Receipt Date: 20170324
  Transmission Date: 20170429
  Serious: Yes (Life-Threatening)
  Sender: FDA-Public Use
  Company Number: PHEH2017US008169

PATIENT
  Sex: Female

DRUGS (3)
  1. AFINITOR DISPERZ [Suspect]
     Active Substance: EVEROLIMUS
     Dosage: 4 MG, QOD (ALTERNATING WITH 3 MG OTHER DAY)
     Route: 048
     Dates: start: 201701
  2. AFINITOR DISPERZ [Suspect]
     Active Substance: EVEROLIMUS
     Dosage: 3 MG, QOD (ALTERNATING WITH 4 MG OTHER DAY)
     Route: 048
     Dates: start: 201701
  3. AFINITOR DISPERZ [Suspect]
     Active Substance: EVEROLIMUS
     Indication: ASTROCYTOMA, LOW GRADE
     Dosage: 2.5 MG, QOD  (EVERY MONDAY, WEDNESDAY AND FRIDAY)
     Route: 048
     Dates: start: 20130523

REACTIONS (4)
  - Apparent death [Unknown]
  - Unresponsive to stimuli [Unknown]
  - Hypoglycaemic encephalopathy [Recovering/Resolving]
  - Gait disturbance [Unknown]
